FAERS Safety Report 4320359-3 (Version None)
Quarter: 2004Q1

REPORT INFORMATION
  Report Type: 
  Country: None (occurrence: None)
  Receive Date: 20040317
  Receipt Date: 20040305
  Transmission Date: 20041129
  Serious: Yes (Other)
  Sender: FDA-Public Use
  Company Number: JP-JNJFOC-20040301707

PATIENT
  Age: 65 Year
  Sex: Female
  Weight: 38 kg

DRUGS (3)
  1. REMICADE [Suspect]
     Indication: CROHN'S DISEASE
     Dosage: 190 MG, 1 IN 1 AS NECESSARY, INTRAVENOUS DRIP
     Route: 041
     Dates: start: 20040225, end: 20040225
  2. PENTASA [Concomitant]
  3. PREDNISOLONE [Concomitant]

REACTIONS (1)
  - HEPATIC FUNCTION ABNORMAL [None]
